FAERS Safety Report 9312429 (Version 1)
Quarter: 2013Q2

REPORT INFORMATION
  Report Type: Spontaneous
  Country: JP (occurrence: JP)
  Receive Date: 20130528
  Receipt Date: 20130528
  Transmission Date: 20140414
  Serious: Yes (Other)
  Sender: FDA-Public Use
  Company Number: JP-JNJFOC-20130505298

PATIENT
  Age: 77 Year
  Sex: Female

DRUGS (8)
  1. TRAMCET [Suspect]
     Indication: BACK PAIN
     Dosage: 8 TABLETS 1 PER 1 DAY
     Route: 048
     Dates: end: 20130508
  2. TRAMCET [Suspect]
     Indication: PAIN
     Dosage: 8 TABLETS 1 PER 1 DAY
     Route: 048
     Dates: end: 20130508
  3. LYRICA [Concomitant]
     Dosage: 1 PER 1 DAY
     Route: 048
  4. NAUZELIN [Concomitant]
     Dosage: 1 PER 1 DAY
     Route: 048
  5. SENNOSIDE [Concomitant]
     Dosage: 1 PER 1 DAY
     Route: 048
  6. JANUVIA [Concomitant]
     Route: 048
  7. MICARDIS [Concomitant]
     Dosage: 1 PER 1 DAY
     Route: 048
  8. MYSLEE [Concomitant]
     Dosage: 1 PER 1 DAY
     Route: 048

REACTIONS (3)
  - Inadequate analgesia [Recovered/Resolved]
  - Ureteric cancer [Unknown]
  - Malignant neoplasm of renal pelvis [Unknown]
